FAERS Safety Report 6800781-3 (Version None)
Quarter: 2010Q2

REPORT INFORMATION
  Report Type: 
  Country: None (occurrence: None)
  Receive Date: 20100629
  Receipt Date: 20100617
  Transmission Date: 20101027
  Serious: Yes (Hospitalization)
  Sender: FDA-Public Use
  Company Number: JP-SANOFI-AVENTIS-2010SA036358

PATIENT
  Age: 36 Year
  Sex: Female

DRUGS (2)
  1. ZOLPIDEM TARTRATE [Suspect]
     Indication: DRUG USE FOR UNKNOWN INDICATION
     Route: 048
  2. AMLODIPINE [Suspect]
     Indication: DRUG USE FOR UNKNOWN INDICATION
     Route: 048

REACTIONS (5)
  - BLOOD PRESSURE DECREASED [None]
  - COMA SCALE ABNORMAL [None]
  - MULTIPLE DRUG OVERDOSE [None]
  - RENAL FAILURE ACUTE [None]
  - RHABDOMYOLYSIS [None]
